FAERS Safety Report 14741760 (Version 1)
Quarter: 2018Q2

REPORT INFORMATION
  Report Type: Report from Study
  Country: SG (occurrence: SG)
  Receive Date: 20180410
  Receipt Date: 20180410
  Transmission Date: 20180711
  Serious: Yes (Death, Other)
  Sender: FDA-Public Use
  Company Number: SG-VIIV HEALTHCARE LIMITED-SG2018GSK061099

PATIENT

DRUGS (1)
  1. ZIDOVUDINE. [Suspect]
     Active Substance: ZIDOVUDINE
     Indication: HIV INFECTION
     Route: 064

REACTIONS (3)
  - Sepsis [Fatal]
  - Premature baby [Unknown]
  - Foetal exposure during pregnancy [Unknown]
